FAERS Safety Report 4307065-6 (Version None)
Quarter: 2004Q1

REPORT INFORMATION
  Report Type: 
  Country: None (occurrence: None)
  Receive Date: 20040225
  Receipt Date: 20040211
  Transmission Date: 20041129
  Serious: Yes (Death, Other)
  Sender: FDA-Public Use
  Company Number: IT-SHR-04-021228

PATIENT
  Age: 62 Year
  Sex: Male

DRUGS (13)
  1. CAMPATH [Suspect]
     Indication: MYCOSIS FUNGOIDES
     Dosage: SEE IMAGE
     Route: 041
  2. ETOPOSIDE [Concomitant]
  3. IDARUBICIN(IDARUBICIN) [Concomitant]
  4. CYCLOPHOSHAMIDE [Concomitant]
  5. VINCRISTINE [Concomitant]
  6. PREDNISONE [Concomitant]
  7. BLEOMYCIN [Concomitant]
  8. ANTI-DIABETICS [Concomitant]
  9. ACETAMINOPHEN [Concomitant]
  10. ANTI-HISTAMINE TAB [Concomitant]
  11. ACYCLOVIR [Concomitant]
  12. TRIMETHOPRIM [Concomitant]
  13. SULFAMETHOXAZOLE [Concomitant]

REACTIONS (8)
  - ANAEMIA [None]
  - CHILLS [None]
  - GRANULOCYTOPENIA [None]
  - HYPOTENSION [None]
  - MYOCARDIAL INFARCTION [None]
  - NAUSEA [None]
  - PYREXIA [None]
  - VOMITING [None]
